FAERS Safety Report 4613026-X (Version None)
Quarter: 2005Q1

REPORT INFORMATION
  Report Type: 
  Country: None (occurrence: None)
  Receive Date: 20050318
  Receipt Date: 20041217
  Transmission Date: 20050727
  Serious: Yes (Hospitalization)
  Sender: FDA-Public Use
  Company Number: US-MERCK-0412USA02255

PATIENT
  Age: 57 Year
  Sex: Female

DRUGS (6)
  1. VIOXX [Suspect]
     Indication: ARTHRITIS
     Route: 048
     Dates: end: 20041001
  2. LIPITOR [Concomitant]
     Route: 065
  3. CLARINEX [Concomitant]
     Route: 065
  4. NEXIUM [Concomitant]
     Route: 065
  5. XANAX [Concomitant]
     Route: 065
  6. ESTROGENS (UNSPECIFIED) [Concomitant]
     Route: 065

REACTIONS (15)
  - ACUTE SINUSITIS [None]
  - ANGINA UNSTABLE [None]
  - ANXIETY [None]
  - CHEST DISCOMFORT [None]
  - CORONARY ARTERY ATHEROSCLEROSIS [None]
  - DEPRESSION [None]
  - DYSPNOEA [None]
  - FATIGUE [None]
  - GASTROOESOPHAGEAL REFLUX DISEASE [None]
  - HYPERTENSION [None]
  - INSOMNIA [None]
  - LUNG NEOPLASM [None]
  - MYOCARDIAL INFARCTION [None]
  - ORTHOSTATIC HYPOTENSION [None]
  - POLLAKIURIA [None]
